FAERS Safety Report 9187709 (Version 3)
Quarter: 2013Q2

REPORT INFORMATION
  Report Type: Spontaneous
  Country: IT (occurrence: IT)
  Receive Date: 20130325
  Receipt Date: 20130625
  Transmission Date: 20140414
  Serious: Yes (Other)
  Sender: FDA-Public Use
  Company Number: IT-ROCHE-1205669

PATIENT
  Age: 77 Year
  Sex: Female

DRUGS (7)
  1. AVASTIN [Suspect]
     Indication: RECTAL CANCER
     Route: 042
     Dates: start: 20121105, end: 20121105
  2. FLUOROURACILE TEVA [Suspect]
     Indication: RECTAL CANCER
     Route: 040
     Dates: start: 20121105, end: 20121105
  3. FLUOROURACILE TEVA [Suspect]
     Route: 042
     Dates: start: 20121105, end: 20121106
  4. IRINOTECAN [Suspect]
     Indication: RECTAL CANCER
     Route: 042
     Dates: start: 20121105, end: 20121105
  5. RANIDIL [Concomitant]
     Route: 042
     Dates: start: 20121105, end: 20121105
  6. ONDANSETRON HIKMA [Concomitant]
     Route: 042
     Dates: start: 20121105, end: 20121105
  7. SOLDESAM [Concomitant]
     Route: 042
     Dates: start: 20121105, end: 20121105

REACTIONS (7)
  - Conjunctivitis [Recovering/Resolving]
  - Dyspnoea [Recovering/Resolving]
  - Nail discolouration [Recovering/Resolving]
  - Nausea [Recovering/Resolving]
  - Stomatitis [Recovering/Resolving]
  - Vomiting [Recovering/Resolving]
  - Diarrhoea [Recovering/Resolving]
